FAERS Safety Report 9156813 (Version 1)
Quarter: 2013Q1

REPORT INFORMATION
  Report Type: Spontaneous
  Country: US (occurrence: US)
  Receive Date: 20130312
  Receipt Date: 20130312
  Transmission Date: 20140127
  Serious: Yes (Other)
  Sender: FDA-Public Use
  Company Number: US-BAYER-2013-028055

PATIENT
  Age: 40 Year
  Sex: Female
  Weight: 88.44 kg

DRUGS (5)
  1. YASMIN [Suspect]
  2. OXYCODONE/APAP [Concomitant]
     Dosage: 5/325 MG
  3. LEXAPRO [Concomitant]
     Dosage: 30 MG, UNK
  4. WELLBUTRIN [Concomitant]
     Dosage: 100 MG, UNK
  5. DEPAKOTE [Concomitant]
     Dosage: 750 MG, UNK

REACTIONS (2)
  - Thrombophlebitis superficial [None]
  - Thrombophlebitis superficial [None]
